FAERS Safety Report 9796618 (Version 1)
Quarter: 2014Q1

REPORT INFORMATION
  Report Type: Spontaneous
  Country: US (occurrence: US)
  Receive Date: 20140103
  Receipt Date: 20140103
  Transmission Date: 20141002
  Serious: Yes (Death, Other)
  Sender: FDA-Public Use
  Company Number: US-UCBSA-107555

PATIENT
  Age: 24 Year
  Sex: Female

DRUGS (5)
  1. ALPRAZOLAM [Suspect]
     Dosage: ROUTE: INGESTION+PARENTERAL+UNKNOWN
  2. HEROIN [Suspect]
     Dosage: ROUTE: INGESTION+PARENTERAL+UNKNOWN
  3. DIPHENHYDRAMINE [Suspect]
     Dosage: ROUTE: INGESTION+PARENTERAL+UNKNOWN
  4. QUININE [Suspect]
     Dosage: ROUTE: INGESTION+PARENTERAL+UNKNOWN
  5. ETHANOL [Suspect]
     Dosage: ROUTE: INGESTION+PARENTERAL+UNKNOWN

REACTIONS (1)
  - Drug abuse [Fatal]
